FAERS Safety Report 12469934 (Version 1)
Quarter: 2016Q2

REPORT INFORMATION
  Report Type: Spontaneous
  Country: US (occurrence: US)
  Receive Date: 20160615
  Receipt Date: 20160615
  Transmission Date: 20160815
  Serious: No
  Sender: FDA-Public Use
  Company Number: US-BAYER-2016-117284

PATIENT
  Sex: Female

DRUGS (2)
  1. ALEVE [Suspect]
     Active Substance: NAPROXEN SODIUM
     Indication: PAIN IN EXTREMITY
  2. ALEVE [Suspect]
     Active Substance: NAPROXEN SODIUM
     Indication: PERIPHERAL SWELLING
     Dosage: UNK
     Route: 048

REACTIONS (3)
  - Drug ineffective [None]
  - Product use issue [None]
  - Therapeutic response unexpected [None]

NARRATIVE: CASE EVENT DATE: 20160613
